FAERS Safety Report 17875456 (Version 1)
Quarter: 2020Q2

REPORT INFORMATION
  Report Type: Spontaneous
  Country: US (occurrence: US)
  Receive Date: 20200609
  Receipt Date: 20200609
  Transmission Date: 20200714
  Serious: Yes (Other)
  Sender: FDA-Public Use
  Company Number: None

PATIENT
  Age: 74 Year
  Sex: Male
  Weight: 94 kg

DRUGS (2)
  1. RESMEDIVIR [Concomitant]
     Dates: start: 20200604, end: 20200609
  2. REMDESIVIR. [Suspect]
     Active Substance: REMDESIVIR
     Indication: ACUTE RESPIRATORY DISTRESS SYNDROME
     Dates: start: 20200604, end: 20200609

REACTIONS (3)
  - Acute respiratory distress syndrome [None]
  - Blood magnesium increased [None]
  - Condition aggravated [None]
